FAERS Safety Report 24214875 (Version 1)
Quarter: 2024Q3

REPORT INFORMATION
  Report Type: Spontaneous
  Country: FR (occurrence: FR)
  Receive Date: 20240815
  Receipt Date: 20240815
  Transmission Date: 20241017
  Serious: Yes (Hospitalization)
  Sender: SANOFI AVENTIS
  Company Number: None

PATIENT
  Age: 78 Year
  Sex: Male

DRUGS (8)
  1. LOVENOX [Suspect]
     Active Substance: ENOXAPARIN SODIUM
     Indication: Pulmonary embolism
     Dosage: 8000 DF, BID
     Route: 058
     Dates: start: 20240322, end: 20240325
  2. LOVENOX [Suspect]
     Active Substance: ENOXAPARIN SODIUM
     Dosage: 6000 DF, BID
     Route: 058
     Dates: start: 20240327, end: 20240329
  3. LOVENOX [Suspect]
     Active Substance: ENOXAPARIN SODIUM
     Dosage: 7000 DF, BID
     Route: 058
     Dates: start: 20240330, end: 20240331
  4. LOVENOX [Suspect]
     Active Substance: ENOXAPARIN SODIUM
     Dosage: 5000 DF, BID
     Route: 058
     Dates: start: 20240401
  5. RIVASTIGMINE [Concomitant]
     Active Substance: RIVASTIGMINE
     Indication: Dementia Alzheimer^s type
     Dosage: 9.5MG, QD
     Route: 003
     Dates: start: 20210329, end: 20240323
  6. AUGMENTIN [Concomitant]
     Active Substance: AMOXICILLIN\CLAVULANATE POTASSIUM
     Indication: Pneumonia
     Dosage: 1G, TID
     Route: 042
     Dates: start: 20240323, end: 20240326
  7. AUGMENTIN [Concomitant]
     Active Substance: AMOXICILLIN\CLAVULANATE POTASSIUM
     Dosage: 1G, TID
     Route: 048
     Dates: start: 20240326, end: 20240330
  8. ATORVASTATIN [Concomitant]
     Active Substance: ATORVASTATIN
     Indication: Cardiovascular event prophylaxis
     Dosage: 40MG, QD
     Route: 048
     Dates: start: 20210528

REACTIONS (3)
  - Anti factor X activity increased [Recovered/Resolved]
  - Haematuria [Recovered/Resolved]
  - Overdose [Unknown]

NARRATIVE: CASE EVENT DATE: 20240301
